FAERS Safety Report 5711243-9 (Version None)
Quarter: 2008Q2

REPORT INFORMATION
  Report Type: 
  Country: None (occurrence: None)
  Receive Date: 20080421
  Receipt Date: 20080421
  Transmission Date: 20081010
  Serious: Yes (Death, Life-Threatening, Hospitalization)
  Sender: FDA-Public Use
  Company Number: None

PATIENT
  Age: 56 Year
  Sex: Male
  Weight: 90.7194 kg

DRUGS (3)
  1. HEPARIN SODIUM [Suspect]
     Indication: DIALYSIS
     Dosage: ONE VIAL DAILY
     Dates: start: 20071201, end: 20080213
  2. HEPARIN SODIUM [Suspect]
     Indication: PROPHYLAXIS
     Dosage: ONE VIAL DAILY
     Dates: start: 20071201, end: 20080213
  3. HEPARIN SODIUM [Suspect]
     Indication: THROMBOSIS PROPHYLAXIS
     Dosage: ONE VIAL DAILY
     Dates: start: 20071201, end: 20080213

REACTIONS (4)
  - ASTHENIA [None]
  - DIARRHOEA [None]
  - HYPOTENSION [None]
  - VOMITING [None]
